FAERS Safety Report 20887223 (Version 6)
Quarter: 2022Q3

REPORT INFORMATION
  Report Type: Spontaneous
  Country: JP (occurrence: JP)
  Receive Date: 20220528
  Receipt Date: 20220923
  Transmission Date: 20221026
  Serious: Yes (Other)
  Sender: FDA-Public Use
  Company Number: JP-UNITED THERAPEUTICS-UNT-2022-007138

PATIENT
  Age: 4 Year
  Sex: Male
  Weight: 15.1 kg

DRUGS (27)
  1. UNITUXIN [Suspect]
     Active Substance: DINUTUXIMAB
     Indication: Neuroblastoma
     Dosage: 17.5 MG/M2, CYCLICAL (CYCLE 1)
     Route: 041
     Dates: start: 20220307, end: 20220310
  2. UNITUXIN [Suspect]
     Active Substance: DINUTUXIMAB
     Dosage: 17.5 MG/M2, CYCLICAL (CYCLE 2)
     Route: 041
     Dates: start: 20220418, end: 20220421
  3. UNITUXIN [Suspect]
     Active Substance: DINUTUXIMAB
     Dosage: 17.5 MG/M2, CYCLICAL (CYCLE 3)
     Route: 041
     Dates: start: 20220509, end: 20220512
  4. UNITUXIN [Suspect]
     Active Substance: DINUTUXIMAB
     Dosage: 17.5 MG/M2, CYCLICAL (CYCLE 4)
     Route: 041
     Dates: start: 20220620, end: 20220623
  5. UNITUXIN [Suspect]
     Active Substance: DINUTUXIMAB
     Dosage: 17.5 MG/M2, CYCLICAL (CYCLE 5)
     Route: 041
     Dates: start: 20220711, end: 20220714
  6. TECELEUKIN [Suspect]
     Active Substance: TECELEUKIN
     Indication: Neuroblastoma
     Dosage: UNK
     Route: 065
     Dates: start: 20220404, end: 20220406
  7. TECELEUKIN [Suspect]
     Active Substance: TECELEUKIN
     Dosage: 490000 IU/M2
     Route: 065
     Dates: start: 20220404, end: 20220406
  8. TECELEUKIN [Suspect]
     Active Substance: TECELEUKIN
     Dosage: 490000 IU/M2
     Route: 065
     Dates: start: 20220412, end: 20220412
  9. TECELEUKIN [Suspect]
     Active Substance: TECELEUKIN
     Dosage: 630000 IU/M2
     Route: 065
     Dates: start: 20220418, end: 20220420
  10. TECELEUKIN [Suspect]
     Active Substance: TECELEUKIN
     Dosage: 750000 IU/M2
     Route: 065
     Dates: start: 20220606
  11. TECELEUKIN [Suspect]
     Active Substance: TECELEUKIN
     Dosage: 490000 IU/M2
     Route: 065
     Dates: start: 20220606, end: 20220608
  12. TECELEUKIN [Suspect]
     Active Substance: TECELEUKIN
     Dosage: 490000 IU/M2
     Route: 065
     Dates: start: 20220613, end: 20220614
  13. TECELEUKIN [Suspect]
     Active Substance: TECELEUKIN
     Dosage: 630000 IU/M2 (ADMINISTERED AT A RATE OF 50%.), CYCLE 4
     Route: 065
     Dates: start: 20220615, end: 20220623
  14. FILGRASTIM [Concomitant]
     Active Substance: FILGRASTIM
     Indication: Neuroblastoma
     Dosage: 5 ?G/KG, QD [CYCLE1]
     Route: 065
     Dates: start: 20220304, end: 20220317
  15. FILGRASTIM [Concomitant]
     Active Substance: FILGRASTIM
     Dosage: 5 ?G/KG, QD [CYCLE3]
     Route: 065
     Dates: start: 20220506, end: 20220519
  16. FILGRASTIM [Concomitant]
     Active Substance: FILGRASTIM
     Dosage: 5 ?G/KG, QD [CYCLE 5]
     Route: 065
     Dates: start: 20220708, end: 20220721
  17. FENTANYL CITRATE [Concomitant]
     Active Substance: FENTANYL CITRATE
     Indication: Analgesic therapy
     Dosage: 0.65 ?G/KG/HR
     Route: 065
     Dates: start: 20220307, end: 202203
  18. FENTANYL CITRATE [Concomitant]
     Active Substance: FENTANYL CITRATE
     Indication: Prophylaxis
     Dosage: 0.85 ?G/KG/HR
     Route: 065
     Dates: start: 202203, end: 20220311
  19. FENTANYL CITRATE [Concomitant]
     Active Substance: FENTANYL CITRATE
     Dosage: UNK
     Route: 065
     Dates: start: 20220418, end: 20220422
  20. FENTANYL CITRATE [Concomitant]
     Active Substance: FENTANYL CITRATE
     Dosage: UNK
     Route: 065
     Dates: start: 20220509, end: 20220513
  21. FENTANYL CITRATE [Concomitant]
     Active Substance: FENTANYL CITRATE
     Dosage: UNK
     Route: 065
     Dates: start: 20220620, end: 20220624
  22. FENTANYL CITRATE [Concomitant]
     Active Substance: FENTANYL CITRATE
     Dosage: UNK
     Route: 065
     Dates: start: 20220711, end: 20220715
  23. HYDROXYZINE [Concomitant]
     Active Substance: HYDROXYZINE HYDROCHLORIDE
     Indication: Prophylaxis
     Dosage: UNK
     Route: 065
     Dates: start: 20220307, end: 20220311
  24. HYDROXYZINE [Concomitant]
     Active Substance: HYDROXYZINE HYDROCHLORIDE
     Dosage: UNK
     Route: 065
     Dates: start: 20220418, end: 20220421
  25. HYDROXYZINE [Concomitant]
     Active Substance: HYDROXYZINE HYDROCHLORIDE
     Dosage: UNK
     Route: 065
     Dates: start: 20220509, end: 20220513
  26. HYDROXYZINE [Concomitant]
     Active Substance: HYDROXYZINE HYDROCHLORIDE
     Dosage: UNK
     Route: 065
     Dates: start: 20220620, end: 20220623
  27. HYDROXYZINE [Concomitant]
     Active Substance: HYDROXYZINE HYDROCHLORIDE
     Dosage: UNK
     Route: 065
     Dates: start: 20220711, end: 20220715

REACTIONS (32)
  - Hypoxia [Recovered/Resolved]
  - Hypoxia [Recovered/Resolved]
  - Hypoxia [Recovered/Resolved]
  - Hypoxia [Recovered/Resolved]
  - Hypoxia [Recovered/Resolved]
  - Aspartate aminotransferase increased [Recovered/Resolved]
  - Aspartate aminotransferase increased [Recovered/Resolved]
  - Conjunctivitis [Recovered/Resolved]
  - Pyrexia [Recovered/Resolved]
  - Abdominal pain [Recovered/Resolved]
  - Aspartate aminotransferase increased [Recovered/Resolved]
  - Alanine aminotransferase increased [Recovered/Resolved]
  - Gamma-glutamyltransferase increased [Recovering/Resolving]
  - Hypoalbuminaemia [Recovered/Resolved]
  - Alanine aminotransferase increased [Recovered/Resolved]
  - Hypoalbuminaemia [Recovered/Resolved]
  - Pyrexia [Recovered/Resolved]
  - Pyrexia [Recovered/Resolved]
  - Hypoalbuminaemia [Recovered/Resolved]
  - Gamma-glutamyltransferase increased [Recovered/Resolved]
  - Aspartate aminotransferase increased [Recovered/Resolved]
  - Alanine aminotransferase increased [Recovered/Resolved]
  - Pyrexia [Recovered/Resolved]
  - Pain [Recovered/Resolved]
  - Alanine aminotransferase increased [Recovered/Resolved]
  - Gamma-glutamyltransferase increased [Recovered/Resolved]
  - Pain [Recovered/Resolved]
  - Hypoalbuminaemia [Recovered/Resolved]
  - Pyrexia [Recovered/Resolved]
  - Pyrexia [Recovered/Resolved]
  - Aspartate aminotransferase increased [Recovered/Resolved]
  - Alanine aminotransferase increased [Recovered/Resolved]

NARRATIVE: CASE EVENT DATE: 20220307
